FAERS Safety Report 15655139 (Version 4)
Quarter: 2021Q1

REPORT INFORMATION
  Report Type: Report from Study
  Country: ES (occurrence: ES)
  Receive Date: 20181126
  Receipt Date: 20210225
  Transmission Date: 20210419
  Serious: Yes (Hospitalization)
  Sender: FDA-Public Use
  Company Number: ES-ROCHE-2176147

PATIENT
  Age: 72 Year
  Sex: Female
  Weight: 72 kg

DRUGS (6)
  1. MTIG 7192A [Suspect]
     Active Substance: TIRAGOLUMAB
     Indication: METASTATIC NEOPLASM
     Dosage: DATE OF MOST RECENT DOSE 600 MG OF MTIG7192A PRIOR TO AE ONSET: 14/AUG/2018 AT 4:40 PM (END TIME: 5:
     Route: 042
     Dates: start: 20180202
  2. LOPERAMIDE [Concomitant]
     Active Substance: LOPERAMIDE
     Indication: DIARRHOEA
     Route: 048
  3. DIAZEPAM. [Concomitant]
     Active Substance: DIAZEPAM
     Indication: ANXIETY
     Route: 048
  4. IBUPROFEN. [Concomitant]
     Active Substance: IBUPROFEN
     Indication: PAIN
     Dosage: PRN
     Route: 048
  5. ATEZOLIZUMAB. [Suspect]
     Active Substance: ATEZOLIZUMAB
     Indication: METASTATIC NEOPLASM
     Dosage: DATE OF MOST RECENT DOSE 1200 MG OF ATEZOLIZUMAB PRIOR TO AE ONSET: 14/AUG/2018 AT 5:40 PM (END TIME
     Route: 042
     Dates: start: 20180202
  6. PARACETAMOL [Concomitant]
     Active Substance: ACETAMINOPHEN
     Indication: PAIN
     Dosage: PRN
     Route: 048

REACTIONS (1)
  - Cardiac tamponade [Recovered/Resolved]

NARRATIVE: CASE EVENT DATE: 20180825
